FAERS Safety Report 4916039-3 (Version None)
Quarter: 2006Q1

REPORT INFORMATION
  Report Type: 
  Country: None (occurrence: None)
  Receive Date: 20060217
  Receipt Date: 20060209
  Transmission Date: 20060701
  Serious: Yes (Disabling)
  Sender: FDA-Public Use
  Company Number: US-ABBOTT-06P-163-0325125-00

PATIENT
  Sex: Female

DRUGS (1)
  1. MERIDIA [Suspect]
     Indication: WEIGHT CONTROL
     Dates: start: 20030801

REACTIONS (4)
  - ANXIETY [None]
  - CEREBROVASCULAR ACCIDENT [None]
  - MENTAL DISORDER [None]
  - PHYSICAL DISABILITY [None]
